FAERS Safety Report 9720617 (Version 2)
Quarter: 2013Q4

REPORT INFORMATION
  Report Type: Report from Study
  Country: TR (occurrence: TR)
  Receive Date: 20131129
  Receipt Date: 20131213
  Transmission Date: 20140711
  Serious: Yes (Other)
  Sender: FDA-Public Use
  Company Number: PHHY2013TR136778

PATIENT
  Age: 9 Year
  Sex: Female
  Weight: 19 kg

DRUGS (2)
  1. EXJADE [Suspect]
     Indication: THALASSAEMIA BETA
     Dosage: 500 MG, DAILY
     Route: 048
     Dates: start: 2008
  2. EXJADE [Suspect]
     Dosage: 500 MG, DAILY
     Route: 048

REACTIONS (4)
  - Road traffic accident [Not Recovered/Not Resolved]
  - Scar [Not Recovered/Not Resolved]
  - Aphagia [Not Recovered/Not Resolved]
  - Mouth ulceration [Recovered/Resolved]
